FAERS Safety Report 21264520 (Version 3)
Quarter: 2022Q3

REPORT INFORMATION
  Report Type: Report from Study
  Country: GB (occurrence: GB)
  Receive Date: 20220829
  Receipt Date: 20220926
  Transmission Date: 20221027
  Serious: Yes (Other)
  Sender: FDA-Public Use
  Company Number: GB-JNJFOC-20220845368

PATIENT
  Sex: Female
  Weight: 91 kg

DRUGS (52)
  1. BORTEZOMIB [Suspect]
     Active Substance: BORTEZOMIB
     Indication: Plasma cell myeloma
     Dosage: UNK
     Route: 065
     Dates: start: 20200522
  2. BORTEZOMIB [Suspect]
     Active Substance: BORTEZOMIB
     Dosage: UNK
     Route: 065
     Dates: start: 20200619
  3. BORTEZOMIB [Suspect]
     Active Substance: BORTEZOMIB
     Dosage: UNK
     Route: 065
     Dates: start: 20200717
  4. BORTEZOMIB [Suspect]
     Active Substance: BORTEZOMIB
     Dosage: UNK
     Route: 065
     Dates: start: 20200819
  5. BORTEZOMIB [Suspect]
     Active Substance: BORTEZOMIB
     Dosage: UNK
     Route: 065
     Dates: start: 20200911
  6. BORTEZOMIB [Suspect]
     Active Substance: BORTEZOMIB
     Dosage: UNK
     Route: 065
     Dates: start: 20201230
  7. BORTEZOMIB [Suspect]
     Active Substance: BORTEZOMIB
     Dosage: UNK
     Route: 065
     Dates: start: 20210127
  8. BORTEZOMIB [Suspect]
     Active Substance: BORTEZOMIB
     Dosage: UNK
     Route: 065
     Dates: start: 20210224
  9. BORTEZOMIB [Suspect]
     Active Substance: BORTEZOMIB
     Dosage: UNK
     Route: 065
  10. BORTEZOMIB [Suspect]
     Active Substance: BORTEZOMIB
     Dosage: UNK
     Route: 065
     Dates: start: 20210324
  11. BORTEZOMIB [Suspect]
     Active Substance: BORTEZOMIB
     Dosage: UNK
     Route: 065
     Dates: start: 20210421
  12. BORTEZOMIB [Suspect]
     Active Substance: BORTEZOMIB
     Dosage: UNK
     Route: 065
     Dates: start: 20210520
  13. BORTEZOMIB [Suspect]
     Active Substance: BORTEZOMIB
     Dosage: UNK
     Route: 065
     Dates: start: 20210616
  14. BORTEZOMIB [Suspect]
     Active Substance: BORTEZOMIB
     Dosage: UNK
     Route: 065
     Dates: start: 20210923
  15. BORTEZOMIB [Suspect]
     Active Substance: BORTEZOMIB
     Dosage: UNK
     Route: 065
     Dates: start: 20211021
  16. BORTEZOMIB [Suspect]
     Active Substance: BORTEZOMIB
     Dosage: UNK
     Route: 065
     Dates: start: 20211124
  17. BORTEZOMIB [Suspect]
     Active Substance: BORTEZOMIB
     Dosage: UNK
     Route: 065
     Dates: start: 20211222
  18. DEXAMETHASONE [Suspect]
     Active Substance: DEXAMETHASONE
     Indication: Plasma cell myeloma
     Dosage: UNK
     Route: 065
     Dates: start: 20200522
  19. DEXAMETHASONE [Suspect]
     Active Substance: DEXAMETHASONE
     Dosage: UNK
     Route: 065
     Dates: start: 20200619
  20. DEXAMETHASONE [Suspect]
     Active Substance: DEXAMETHASONE
     Dosage: UNK
     Route: 065
     Dates: start: 20200717
  21. DEXAMETHASONE [Suspect]
     Active Substance: DEXAMETHASONE
     Dosage: UNK
     Route: 065
     Dates: start: 20200819
  22. DEXAMETHASONE [Suspect]
     Active Substance: DEXAMETHASONE
     Dosage: UNK
     Route: 065
     Dates: start: 20200911
  23. DEXAMETHASONE [Suspect]
     Active Substance: DEXAMETHASONE
     Dosage: UNK
     Route: 065
     Dates: start: 20201230
  24. DEXAMETHASONE [Suspect]
     Active Substance: DEXAMETHASONE
     Dosage: UNK
     Route: 065
     Dates: start: 20210127
  25. DEXAMETHASONE [Suspect]
     Active Substance: DEXAMETHASONE
     Dosage: UNK
     Route: 065
     Dates: start: 20210224
  26. DEXAMETHASONE [Suspect]
     Active Substance: DEXAMETHASONE
     Dosage: UNK
     Route: 065
     Dates: start: 20210324
  27. DEXAMETHASONE [Suspect]
     Active Substance: DEXAMETHASONE
     Dosage: UNK
     Route: 065
     Dates: start: 20210421
  28. DEXAMETHASONE [Suspect]
     Active Substance: DEXAMETHASONE
     Dosage: UNK
     Route: 065
     Dates: start: 20210520
  29. DEXAMETHASONE [Suspect]
     Active Substance: DEXAMETHASONE
     Dosage: UNK
     Route: 065
     Dates: start: 20210616
  30. DEXAMETHASONE [Suspect]
     Active Substance: DEXAMETHASONE
     Dosage: UNK
     Route: 065
     Dates: start: 20210923
  31. DEXAMETHASONE [Suspect]
     Active Substance: DEXAMETHASONE
     Dosage: UNK
     Route: 065
     Dates: start: 20211021
  32. DEXAMETHASONE [Suspect]
     Active Substance: DEXAMETHASONE
     Dosage: UNK
     Route: 065
     Dates: start: 20211124
  33. DEXAMETHASONE [Suspect]
     Active Substance: DEXAMETHASONE
     Dosage: UNK
     Route: 065
     Dates: start: 20211222
  34. DARZALEX [Suspect]
     Active Substance: DARATUMUMAB
     Indication: Plasma cell myeloma
     Dosage: UNK
     Route: 065
  35. PANOBINOSTAT [Suspect]
     Active Substance: PANOBINOSTAT
     Indication: Plasma cell myeloma
     Dosage: UNK
     Route: 065
     Dates: start: 20200522
  36. PANOBINOSTAT [Suspect]
     Active Substance: PANOBINOSTAT
     Dosage: UNK
     Route: 065
     Dates: start: 20200619
  37. PANOBINOSTAT [Suspect]
     Active Substance: PANOBINOSTAT
     Dosage: UNK
     Route: 065
     Dates: start: 20200717
  38. PANOBINOSTAT [Suspect]
     Active Substance: PANOBINOSTAT
     Dosage: UNK
     Route: 065
     Dates: start: 20200819
  39. PANOBINOSTAT [Suspect]
     Active Substance: PANOBINOSTAT
     Dosage: UNK
     Route: 065
     Dates: start: 20200911
  40. PANOBINOSTAT [Suspect]
     Active Substance: PANOBINOSTAT
     Dosage: UNK
     Route: 065
     Dates: start: 20201230
  41. PANOBINOSTAT [Suspect]
     Active Substance: PANOBINOSTAT
     Dosage: UNK
     Route: 065
     Dates: start: 20210127
  42. PANOBINOSTAT [Suspect]
     Active Substance: PANOBINOSTAT
     Dosage: UNK
     Route: 065
     Dates: start: 20210224
  43. PANOBINOSTAT [Suspect]
     Active Substance: PANOBINOSTAT
     Dosage: UNK
     Route: 065
     Dates: start: 20210324
  44. PANOBINOSTAT [Suspect]
     Active Substance: PANOBINOSTAT
     Dosage: UNK
     Route: 065
     Dates: start: 20210421
  45. PANOBINOSTAT [Suspect]
     Active Substance: PANOBINOSTAT
     Dosage: UNK
     Route: 065
     Dates: start: 20210520
  46. PANOBINOSTAT [Suspect]
     Active Substance: PANOBINOSTAT
     Dosage: UNK
     Route: 065
     Dates: start: 20210616
  47. PANOBINOSTAT [Suspect]
     Active Substance: PANOBINOSTAT
     Dosage: UNK
     Route: 065
     Dates: start: 20210923
  48. PANOBINOSTAT [Suspect]
     Active Substance: PANOBINOSTAT
     Dosage: UNK
     Route: 065
     Dates: start: 20211021
  49. PANOBINOSTAT [Suspect]
     Active Substance: PANOBINOSTAT
     Dosage: UNK
     Route: 065
     Dates: start: 20211124
  50. PANOBINOSTAT [Suspect]
     Active Substance: PANOBINOSTAT
     Dosage: UNK
     Route: 065
     Dates: start: 20211222
  51. LENOGRASTIM [Concomitant]
     Active Substance: LENOGRASTIM
     Indication: Peripheral sensory neuropathy
     Dosage: UNK
     Dates: start: 20200819, end: 20210217
  52. LENOGRASTIM [Concomitant]
     Active Substance: LENOGRASTIM
     Indication: Neutropenia
     Dosage: UNK
     Dates: start: 20210127

REACTIONS (9)
  - Breast abscess [Unknown]
  - Urticaria [Unknown]
  - Fatigue [Unknown]
  - Back pain [Recovering/Resolving]
  - Gastrointestinal disorder [Unknown]
  - Adverse event [Unknown]
  - Swelling [Recovering/Resolving]
  - Feeling abnormal [Recovering/Resolving]
  - Limb discomfort [Recovering/Resolving]

NARRATIVE: CASE EVENT DATE: 20201012
